FAERS Safety Report 23873452 (Version 2)
Quarter: 2024Q2

REPORT INFORMATION
  Report Type: Spontaneous
  Country: AU (occurrence: AU)
  Receive Date: 20240520
  Receipt Date: 20240621
  Transmission Date: 20240716
  Serious: Yes (Death, Other)
  Sender: FDA-Public Use
  Company Number: AU-VIIV HEALTHCARE LIMITED-AU2024APC061100

PATIENT
  Age: 61 Year
  Sex: Male

DRUGS (2)
  1. RILPIVIRINE [Suspect]
     Active Substance: RILPIVIRINE
     Indication: Product used for unknown indication
     Dosage: 1 DF, Q2M 1 SYRINGE CABOTEGRAVIR 600MG/3ML + RILPIVIRINE 900MG/3ML (EVERY 8 WEEKS)
     Route: 030
  2. CABOTEGRAVIR [Suspect]
     Active Substance: CABOTEGRAVIR
     Indication: Product used for unknown indication
     Dosage: 1 DF, Q2M 1 SYRINGE CABOTEGRAVIR 600MG/3ML + RILPIVIRINE 900MG/3ML (EVERY 8 WEEKS)
     Route: 030

REACTIONS (1)
  - Myocardial infarction [Fatal]

NARRATIVE: CASE EVENT DATE: 20240501
